FAERS Safety Report 5828129-1 (Version None)
Quarter: 2008Q3

REPORT INFORMATION
  Report Type: 
  Country: None (occurrence: None)
  Receive Date: 20080729
  Receipt Date: 20080717
  Transmission Date: 20090109
  Serious: Yes (Life-Threatening, Other)
  Sender: FDA-Public Use
  Company Number: 100#03#2008-03700

PATIENT
  Age: 6 Year
  Sex: Male

DRUGS (1)
  1. DESMOPRESSIN ACETATE [Suspect]
     Indication: ENURESIS
     Dosage: 120 MCG, ORAL
     Route: 048

REACTIONS (4)
  - CONVULSION [None]
  - FEELING HOT [None]
  - HYPONATRAEMIA [None]
  - WATER INTOXICATION [None]
